FAERS Safety Report 22311559 (Version 4)
Quarter: 2023Q2

REPORT INFORMATION
  Report Type: Spontaneous
  Country: US (occurrence: US)
  Receive Date: 20230511
  Receipt Date: 20230601
  Transmission Date: 20230722
  Serious: Yes (Other)
  Sender: FDA-Public Use
  Company Number: US-BIOGEN-2023BI01202678

PATIENT
  Age: 42 Year
  Sex: Female

DRUGS (4)
  1. VUMERITY [Suspect]
     Active Substance: DIROXIMEL FUMARATE
     Indication: Multiple sclerosis
     Dosage: STARTING DOSE
     Route: 050
     Dates: start: 20230426, end: 20230502
  2. VUMERITY [Suspect]
     Active Substance: DIROXIMEL FUMARATE
     Dosage: 1 CAPSULE TWICE A DAY FOR 7 DAYS THEN 2 CAPSULES TWICE A DAY
     Route: 050
     Dates: start: 20230502
  3. VUMERITY [Suspect]
     Active Substance: DIROXIMEL FUMARATE
     Route: 050
     Dates: start: 20230503, end: 20230519
  4. TYSABRI [Suspect]
     Active Substance: NATALIZUMAB
     Indication: Multiple sclerosis
     Route: 050
     Dates: start: 20220902, end: 20230306

REACTIONS (18)
  - Seizure [Recovered/Resolved]
  - Central nervous system lesion [Unknown]
  - Asthma [Unknown]
  - Gastrointestinal disorder [Unknown]
  - Migraine [Unknown]
  - Multiple sclerosis relapse [Unknown]
  - Gait disturbance [Unknown]
  - Micturition disorder [Unknown]
  - Feeling abnormal [Unknown]
  - Disorientation [Unknown]
  - Urinary retention [Unknown]
  - Dizziness [Unknown]
  - Muscle spasms [Unknown]
  - Flushing [Recovered/Resolved]
  - Nausea [Recovered/Resolved]
  - Abdominal pain upper [Not Recovered/Not Resolved]
  - Vomiting [Unknown]
  - Diarrhoea [Recovered/Resolved]

NARRATIVE: CASE EVENT DATE: 20230501
